FAERS Safety Report 18884516 (Version 2)
Quarter: 2021Q3

REPORT INFORMATION
  Report Type: Report from Study
  Country: US (occurrence: US)
  Receive Date: 20210212
  Receipt Date: 20210722
  Transmission Date: 20211014
  Serious: No
  Sender: FDA-Public Use
  Company Number: US-ACADIA PHARMACEUTICALS INC.-ACA-2021-PIM-000408

PATIENT
  Age: 82 Year
  Sex: Male

DRUGS (6)
  1. CYANOCOBALAMIN. [Concomitant]
     Active Substance: CYANOCOBALAMIN
     Dosage: 1000 MCQ/ML
  2. LORAZEPAM. [Concomitant]
     Active Substance: LORAZEPAM
     Dosage: 0.5 MG
  3. NUPLAZID [Suspect]
     Active Substance: PIMAVANSERIN TARTRATE
     Dosage: 34 MILLIGRAM, QD
     Route: 048
     Dates: start: 2021, end: 20210621
  4. QUETIAPINE. [Concomitant]
     Active Substance: QUETIAPINE
     Dosage: 25 MILLIGRAM
  5. NUPLAZID [Suspect]
     Active Substance: PIMAVANSERIN TARTRATE
     Indication: HALLUCINATION
     Dosage: 34 MILLIGRAM, QD
     Route: 048
     Dates: start: 20201231, end: 20210113
  6. TRAZODONE [Concomitant]
     Active Substance: TRAZODONE HYDROCHLORIDE
     Dosage: 50 MILLIGRAM

REACTIONS (6)
  - Negative thoughts [Not Recovered/Not Resolved]
  - Abnormal behaviour [Recovered/Resolved]
  - Confusional state [Recovered/Resolved]
  - Drug ineffective [Not Recovered/Not Resolved]
  - Hallucination [Not Recovered/Not Resolved]
  - Aggression [Recovered/Resolved]

NARRATIVE: CASE EVENT DATE: 202101
